FAERS Safety Report 20654864 (Version 1)
Quarter: 2022Q1

REPORT INFORMATION
  Report Type: Spontaneous
  Country: US (occurrence: US)
  Receive Date: 20220330
  Receipt Date: 20220330
  Transmission Date: 20220424
  Serious: No
  Sender: FDA-Public Use
  Company Number: US-PFIZER INC-202200364133

PATIENT
  Age: 71 Year
  Sex: Female

DRUGS (1)
  1. MEKTOVI [Suspect]
     Active Substance: BINIMETINIB
     Dosage: 5 DAYS THEN OFF FOR 10

REACTIONS (5)
  - Feeling abnormal [Unknown]
  - Rash [Unknown]
  - Vulvovaginal discomfort [Unknown]
  - Nipple enlargement [Unknown]
  - Off label use [Unknown]
